FAERS Safety Report 7524998-8 (Version None)
Quarter: 2011Q2

REPORT INFORMATION
  Report Type: 
  Country: None (occurrence: None)
  Receive Date: 20110606
  Receipt Date: 20110526
  Transmission Date: 20111010
  Serious: Yes (Hospitalization)
  Sender: FDA-Public Use
  Company Number: US-ASTELLAS-2011US001952

PATIENT
  Sex: Female
  Weight: 78 kg

DRUGS (2)
  1. PROGRAF [Suspect]
     Indication: RENAL TRANSPLANT
     Dosage: 1.5 MG, BID
     Route: 048
  2. CELLCEPT [Concomitant]
     Indication: PRODUCT USED FOR UNKNOWN INDICATION
     Dosage: UNK
     Route: 065

REACTIONS (14)
  - PNEUMONIA [None]
  - SUPRAPUBIC PAIN [None]
  - DIARRHOEA [None]
  - COUGH [None]
  - KIDNEY TRANSPLANT REJECTION [None]
  - OROPHARYNGEAL PAIN [None]
  - MUSCLE SPASMS [None]
  - HAEMORRHOIDS [None]
  - PRURITUS [None]
  - DRUG INEFFECTIVE [None]
  - ESCHERICHIA TEST POSITIVE [None]
  - RENAL ATROPHY [None]
  - URINARY TRACT INFECTION [None]
  - RENAL CYST [None]
